FAERS Safety Report 6608236-6 (Version None)
Quarter: 2010Q1

REPORT INFORMATION
  Report Type: 
  Country: None (occurrence: None)
  Receive Date: 20100301
  Receipt Date: 20100217
  Transmission Date: 20100710
  Serious: Yes (Hospitalization)
  Sender: FDA-Public Use
  Company Number: JP-ROCHE-684851

PATIENT
  Sex: Male

DRUGS (5)
  1. AVASTIN [Suspect]
     Indication: RECTAL CANCER RECURRENT
     Route: 041
     Dates: start: 20090908, end: 20091020
  2. 5-FU [Suspect]
     Indication: RECTAL CANCER RECURRENT
     Dosage: NOTE: UNCERTAINTY
     Route: 041
     Dates: start: 20090901
  3. 5-FU [Suspect]
     Route: 040
     Dates: start: 20090901
  4. IRINOTECAN HYDROCHLORIDE [Concomitant]
     Route: 041
     Dates: start: 20090901
  5. LEVOFOLINATE [Concomitant]
     Route: 041
     Dates: start: 20090901

REACTIONS (2)
  - ALTERED STATE OF CONSCIOUSNESS [None]
  - HYPERAMMONAEMIA [None]
